FAERS Safety Report 16107651 (Version 2)
Quarter: 2019Q2

REPORT INFORMATION
  Report Type: Spontaneous
  Country: ES (occurrence: ES)
  Receive Date: 20190322
  Receipt Date: 20190405
  Transmission Date: 20190711
  Serious: Yes (Other)
  Sender: FDA-Public Use
  Company Number: ES-PFIZER INC-2019121144

PATIENT
  Age: 57 Year
  Sex: Female

DRUGS (2)
  1. TENOXICAM [Suspect]
     Active Substance: TENOXICAM
     Dosage: UNK
  2. PIROXICAM. [Suspect]
     Active Substance: PIROXICAM
     Dosage: UNK

REACTIONS (2)
  - Therapeutic product cross-reactivity [Unknown]
  - Fixed eruption [Unknown]
